FAERS Safety Report 11235501 (Version 1)
Quarter: 2015Q3

REPORT INFORMATION
  Report Type: Spontaneous
  Country: IN (occurrence: IN)
  Receive Date: 20150702
  Receipt Date: 20150702
  Transmission Date: 20151125
  Serious: Yes (Other)
  Sender: FDA-Public Use
  Company Number: IN-FRESENIUS KABI-FK201503125

PATIENT
  Age: 9 Year
  Sex: Male

DRUGS (4)
  1. NEOSTIGMINE (MANUFACTURER UNKNOWN) (NEOSTIGMINE, METHYLSULFATE) [Suspect]
     Active Substance: NEOSTIGMINE
     Route: 065
  2. GLYCOPYRROLATE. [Suspect]
     Active Substance: GLYCOPYRROLATE
     Route: 065
  3. NEOSTIGMINE (MANUFACTURER UNKNOWN) (NEOSTIGMINE, METHYLSULFATE) [Suspect]
     Active Substance: NEOSTIGMINE
     Indication: ANAESTHESIA REVERSAL
     Route: 065
  4. GLYCOPYRROLATE. [Suspect]
     Active Substance: GLYCOPYRROLATE
     Indication: ANAESTHESIA REVERSAL
     Route: 065

REACTIONS (1)
  - Acute pulmonary oedema [Recovered/Resolved]
